FAERS Safety Report 12749153 (Version 1)
Quarter: 2016Q3

REPORT INFORMATION
  Report Type: Spontaneous
  Country: US (occurrence: US)
  Receive Date: 20160915
  Receipt Date: 20160915
  Transmission Date: 20161109
  Serious: Yes (Hospitalization)
  Sender: FDA-Public Use
  Company Number: US-ELI_LILLY_AND_COMPANY-US201609002002

PATIENT
  Sex: Female

DRUGS (4)
  1. WELLBUTRIN [Concomitant]
     Active Substance: BUPROPION HYDROCHLORIDE
  2. DULOXETINE HYDROCHLORIDE. [Suspect]
     Active Substance: DULOXETINE HYDROCHLORIDE
     Indication: MAJOR DEPRESSION
     Dosage: UNK, UNKNOWN
     Route: 065
     Dates: start: 2015
  3. CYMBALTA [Suspect]
     Active Substance: DULOXETINE HYDROCHLORIDE
     Indication: MAJOR DEPRESSION
     Dosage: 60 MG, QD
     Route: 065
     Dates: start: 2007, end: 2015
  4. ABILIFY [Concomitant]
     Active Substance: ARIPIPRAZOLE

REACTIONS (1)
  - Depression [Unknown]
